FAERS Safety Report 18612492 (Version 1)
Quarter: 2020Q4

REPORT INFORMATION
  Report Type: Spontaneous
  Country: GB (occurrence: GB)
  Receive Date: 20201214
  Receipt Date: 20201214
  Transmission Date: 20210114
  Serious: Yes (Death)
  Sender: FDA-Public Use
  Company Number: GB-DEXPHARM-20201108

PATIENT
  Age: 82 Year
  Sex: Female

DRUGS (7)
  1. E45 [Suspect]
     Active Substance: LANOLIN\LIGHT MINERAL OIL\PARAFFIN
  2. CETRABEN [LIGHT LIQUID PARAFFIN\WHITE SOFT PARAFFIN] [Suspect]
     Active Substance: MINERAL OIL\PETROLATUM
  3. SUDOCREM [Suspect]
     Active Substance: LANOLIN\ZINC OXIDE
  4. VOLTAROL [Suspect]
     Active Substance: DICLOFENAC SODIUM
  5. TIMODINE (BENZALKONIUM CHLORIDE\DIMETHICONE\HYDROCORTISONE\NYSTATIN) [Suspect]
     Active Substance: BENZALKONIUM CHLORIDE\DIMETHICONE\HYDROCORTISONE\NYSTATIN
  6. DERMALEX [Suspect]
     Active Substance: ALLANTOIN\HEXACHLOROPHENE\SQUALENE
  7. CETOMACROGOL 1000 [Suspect]
     Active Substance: COSMETICS

REACTIONS (1)
  - Accident [Fatal]
